FAERS Safety Report 18340729 (Version 2)
Quarter: 2020Q4

REPORT INFORMATION
  Report Type: Spontaneous
  Country: FR (occurrence: FR)
  Receive Date: 20201003
  Receipt Date: 20201008
  Transmission Date: 20210113
  Serious: Yes (Death, Other)
  Sender: FDA-Public Use
  Company Number: FR-AUROBINDO-AUR-APL-2020-050036

PATIENT
  Age: 19 Year
  Sex: Female

DRUGS (5)
  1. DUPIXENT [Suspect]
     Active Substance: DUPILUMAB
     Indication: DERMATITIS ATOPIC
     Dosage: UNK
     Route: 065
     Dates: start: 201907, end: 20200208
  2. TRAMADOL. [Suspect]
     Active Substance: TRAMADOL
     Indication: PRODUCT USED FOR UNKNOWN INDICATION
     Dosage: UNK
     Route: 065
     Dates: start: 20200217
  3. DUPIXENT [Suspect]
     Active Substance: DUPILUMAB
     Dosage: 300 MILLIGRAM 2 WEEK
     Route: 065
     Dates: start: 20191022, end: 20200208
  4. PROTOPIC [Concomitant]
     Active Substance: TACROLIMUS
     Indication: PRODUCT USED FOR UNKNOWN INDICATION
     Dosage: 1 WEEK 1 UNK, QW (1 TIME PER WEEK.)
     Route: 065
     Dates: start: 2017
  5. VENTOLIN [Concomitant]
     Active Substance: ALBUTEROL SULFATE
     Indication: ASTHMA
     Dosage: UNK
     Route: 065

REACTIONS (15)
  - Hyperhidrosis [Fatal]
  - Vomiting [Fatal]
  - Headache [Fatal]
  - Therapeutic response decreased [Unknown]
  - Peripheral coldness [Fatal]
  - Fall [Unknown]
  - Loss of consciousness [Fatal]
  - Eye pain [Fatal]
  - Musculoskeletal stiffness [Fatal]
  - Skeletal injury [Unknown]
  - Dermatitis atopic [Unknown]
  - Aneurysm [Fatal]
  - Nausea [Fatal]
  - Dizziness [Fatal]
  - Asthenia [Fatal]

NARRATIVE: CASE EVENT DATE: 201909
